FAERS Safety Report 8341671-7 (Version None)
Quarter: 2012Q2

REPORT INFORMATION
  Report Type: 
  Country: None (occurrence: None)
  Receive Date: 20120507
  Receipt Date: 20120427
  Transmission Date: 20120825
  Serious: Yes (Other)
  Sender: FDA-Public Use
  Company Number: US-BAYER-2012-042155

PATIENT
  Age: 35 Year
  Sex: Female

DRUGS (1)
  1. NAPROXEN SODIUM [Suspect]
     Indication: BACK PAIN
     Dosage: 440 MG, UNK
     Route: 048
     Dates: start: 20120426

REACTIONS (5)
  - BACK PAIN [None]
  - ABDOMINAL PAIN UPPER [None]
  - HAEMORRHAGE [None]
  - MUSCULOSKELETAL PAIN [None]
  - HEADACHE [None]
